FAERS Safety Report 23175929 (Version 4)
Quarter: 2024Q2

REPORT INFORMATION
  Report Type: Spontaneous
  Country: DE (occurrence: DE)
  Receive Date: 20231113
  Receipt Date: 20240615
  Transmission Date: 20240715
  Serious: Yes (Other)
  Sender: FDA-Public Use
  Company Number: DE-AstraZeneca-2023A243059

PATIENT
  Age: 50 Year
  Sex: Female

DRUGS (9)
  1. AMLODIPINE [Suspect]
     Active Substance: AMLODIPINE BESYLATE
     Indication: Product used for unknown indication
     Dosage: 1 DOSAGE FORM
     Route: 048
     Dates: start: 20230928, end: 20230928
  2. CANDESARTAN [Suspect]
     Active Substance: CANDESARTAN
     Indication: Product used for unknown indication
     Dosage: UNKNOWN QUANTITY OF TABLET(S) (MAINTENANCE MEDICATION), ORAL, QUESTIONABLE EXPOSURE
     Route: 048
     Dates: start: 20230928, end: 20230928
  3. QUETIAPINE [Suspect]
     Active Substance: QUETIAPINE
     Indication: Product used for unknown indication
     Dosage: 1 DOSAGE FORM, ONCE A DAY
     Route: 048
     Dates: start: 20230928, end: 20230928
  4. DULOXETINE [Suspect]
     Active Substance: DULOXETINE
     Indication: Product used for unknown indication
     Dosage: UNKNOWN QUANTITY OF TABLET(S) (MAINTENANCE MEDICATION), ORAL, QUESTIONABLE EXPOSURE
     Route: 048
     Dates: start: 20230928, end: 20230928
  5. ELIQUIS [Suspect]
     Active Substance: APIXABAN
     Indication: Product used for unknown indication
     Dosage: 5 MILLIGRAM, ONCE A DAY
     Route: 048
     Dates: start: 20230928, end: 20230928
  6. PIPAMPERONE [Suspect]
     Active Substance: PIPAMPERONE
     Indication: Product used for unknown indication
     Dosage: 2 DOSAGE FORM, ONCE A DAY 2 TABLET, 1 ONLY (MIX UP)
     Route: 048
     Dates: start: 20230928, end: 20230928
  7. VALPROATE SODIUM [Suspect]
     Active Substance: VALPROATE SODIUM
     Indication: Product used for unknown indication
     Dosage: UNKNOWN QUANTITY OF TABLET(S) (MAINTENANCE MEDICATION), ORAL, QUESTIONABLE EXPOSURE
     Route: 048
     Dates: start: 20230928, end: 20230928
  8. SULPIRIDE [Suspect]
     Active Substance: SULPIRIDE
     Indication: Product used for unknown indication
     Dosage: UNKNOWN QUANTITY OF TABLET(S) (MAINTENANCE MEDICATION), ORAL, QUESTIONABLE EXPOSURE
     Route: 048
     Dates: start: 20230928, end: 20230928
  9. CHOLECALCIFEROL [Suspect]
     Active Substance: CHOLECALCIFEROL
     Indication: Product used for unknown indication
     Dosage: 1 DOSAGE FORM, ONCE A DAY
     Route: 048
     Dates: start: 20230928, end: 20230928

REACTIONS (6)
  - Syncope [Unknown]
  - Electrocardiogram QT prolonged [Unknown]
  - Suicide attempt [Unknown]
  - Hypotension [Unknown]
  - Blood pressure systolic decreased [Unknown]
  - Somnolence [Unknown]

NARRATIVE: CASE EVENT DATE: 20230928
